FAERS Safety Report 9684869 (Version 1)
Quarter: 2013Q4

REPORT INFORMATION
  Report Type: Spontaneous
  Country: US (occurrence: US)
  Receive Date: 20131112
  Receipt Date: 20131112
  Transmission Date: 20140711
  Serious: No
  Sender: FDA-Public Use
  Company Number: US-009507513-1310USA014580

PATIENT
  Age: 54 Year
  Sex: Female

DRUGS (1)
  1. ZETIA [Suspect]
     Indication: BLOOD CHOLESTEROL INCREASED
     Dosage: 10MG DAILY
     Route: 048
     Dates: start: 20120430

REACTIONS (1)
  - Blood creatine phosphokinase increased [Not Recovered/Not Resolved]
